FAERS Safety Report 14233810 (Version 2)
Quarter: 2017Q4

REPORT INFORMATION
  Report Type: Spontaneous
  Country: IT (occurrence: IT)
  Receive Date: 20171129
  Receipt Date: 20171226
  Transmission Date: 20180321
  Serious: Yes (Death, Hospitalization, Other)
  Sender: FDA-Public Use
  Company Number: IT-009507513-1711ITA010791

PATIENT
  Age: 52 Year
  Sex: Male

DRUGS (11)
  1. ENDOXAN [Suspect]
     Active Substance: CYCLOPHOSPHAMIDE
     Indication: B-CELL LYMPHOMA
     Dosage: THREE CYCLES; 1 DF, CYCLICAL
     Route: 065
     Dates: start: 20170501, end: 20170721
  2. FLUDARABINE PHOSPHATE. [Suspect]
     Active Substance: FLUDARABINE PHOSPHATE
     Indication: B-CELL LYMPHOMA
     Dosage: THREE CYCLES; 1 DF, CYCLICAL
     Route: 065
     Dates: start: 20170501, end: 20170721
  3. MIRTAZAPINE. [Suspect]
     Active Substance: MIRTAZAPINE
     Indication: PROGRESSIVE MULTIFOCAL LEUKOENCEPHALOPATHY
     Dosage: UNK
     Route: 065
  4. MIRTAZAPINE. [Suspect]
     Active Substance: MIRTAZAPINE
     Indication: JC VIRUS TEST POSITIVE
  5. MABTHERA [Suspect]
     Active Substance: RITUXIMAB
     Indication: B-CELL LYMPHOMA
     Dosage: INJECTABLE SOLUTION, THREE CYCLES; 500 MG/M2, CYCLICAL
     Route: 042
     Dates: start: 20170501, end: 20170721
  6. BACTRIM [Concomitant]
     Active Substance: SULFAMETHOXAZOLE\TRIMETHOPRIM
     Indication: ANTIBIOTIC PROPHYLAXIS
     Dosage: UNK
     Route: 048
  7. VYTORIN [Concomitant]
     Active Substance: EZETIMIBE\SIMVASTATIN
     Indication: DYSLIPIDAEMIA
     Dosage: PERIOD OF THERAPY WAS 1 YEAR, UNK
     Route: 048
  8. LANSOX [Concomitant]
     Active Substance: LANSOPRAZOLE
     Indication: PROPHYLAXIS AGAINST GASTROINTESTINAL ULCER
     Dosage: UNK
     Route: 048
  9. NEO-LOTAN PLUS [Concomitant]
     Active Substance: HYDROCHLOROTHIAZIDE\LOSARTAN POTASSIUM
     Indication: HYPERTENSION
     Dosage: PERIOD OF THERAPY WAS 1 YEAR, UNK
     Route: 048
  10. DEPAKIN [Concomitant]
     Active Substance: VALPROATE SODIUM
     Indication: BIPOLAR DISORDER
     Dosage: CHRONO TABLET BLISTER OF 30 TABLETS; PERIOD OF THERAPY WAS 10 YEARS; 500 MG, UNK
     Route: 048
  11. HALDOL DECANOAS [Concomitant]
     Active Substance: HALOPERIDOL DECANOATE
     Indication: BIPOLAR DISORDER
     Dosage: 50 MG/ML INJECTABLE SOLUTION, 1 AMPOULE OF 3 ML, PERIOD OF THERAPY WAS 10 YEAR; 75 MG, UNK
     Route: 030

REACTIONS (5)
  - Sepsis [Fatal]
  - JC virus test positive [Fatal]
  - Respiratory failure [Fatal]
  - Neutropenia [Fatal]
  - Progressive multifocal leukoencephalopathy [Fatal]

NARRATIVE: CASE EVENT DATE: 201708
